FAERS Safety Report 14209884 (Version 1)
Quarter: 2017Q4

REPORT INFORMATION
  Report Type: Spontaneous
  Country: US (occurrence: US)
  Receive Date: 20171121
  Receipt Date: 20171121
  Transmission Date: 20180321
  Serious: Yes (Hospitalization)
  Sender: FDA-Public Use
  Company Number: None

PATIENT
  Age: 61 Year
  Sex: Male
  Weight: 58.5 kg

DRUGS (2)
  1. HARVONI [Suspect]
     Active Substance: LEDIPASVIR\SOFOSBUVIR
     Indication: HEPATITIS C
     Route: 048
     Dates: start: 20170216, end: 20170518
  2. INGEVA SHOT INJECTION [Concomitant]

REACTIONS (2)
  - Psychotic disorder [None]
  - Condition aggravated [None]

NARRATIVE: CASE EVENT DATE: 20170813
